FAERS Safety Report 4853608-3 (Version None)
Quarter: 2005Q4

REPORT INFORMATION
  Report Type: 
  Country: None (occurrence: None)
  Receive Date: 20051125
  Receipt Date: 20050406
  Transmission Date: 20060501
  Serious: Yes (Hospitalization)
  Sender: FDA-Public Use
  Company Number: US-JNJFOC-20050401905

PATIENT
  Age: 20 Year
  Sex: Female

DRUGS (2)
  1. LEVAQUIN [Suspect]
     Indication: BRONCHITIS
     Dosage: 750 MG, 1 IN 1 DAY
     Dates: start: 20050405
  2. LEVAQUIN [Suspect]
     Indication: SINUSITIS
     Dosage: 750 MG, 1 IN 1 DAY
     Dates: start: 20050405

REACTIONS (1)
  - CONVULSION [None]
